FAERS Safety Report 5079140-2 (Version None)
Quarter: 2006Q3

REPORT INFORMATION
  Report Type: 
  Country: None (occurrence: None)
  Receive Date: 20060814
  Receipt Date: 20060718
  Transmission Date: 20061208
  Serious: Yes (Other)
  Sender: FDA-Public Use
  Company Number: FR-AVENTIS-200612523FR

PATIENT
  Age: 43 Year
  Sex: Male
  Weight: 71 kg

DRUGS (5)
  1. KETEK [Suspect]
     Route: 048
     Dates: start: 20060425, end: 20060429
  2. SOLUPRED [Concomitant]
     Route: 048
     Dates: start: 20060425, end: 20060429
  3. SINGULAIR [Concomitant]
     Route: 048
  4. SERETIDE [Concomitant]
     Route: 055
  5. CETIRIZINE [Concomitant]
     Route: 048

REACTIONS (5)
  - ACCOMMODATION DISORDER [None]
  - AMNESIA [None]
  - ROAD TRAFFIC ACCIDENT [None]
  - VISION BLURRED [None]
  - VISUAL DISTURBANCE [None]
